FAERS Safety Report 7156198-8 (Version None)
Quarter: 2010Q4

REPORT INFORMATION
  Report Type: 
  Country: None (occurrence: None)
  Receive Date: 20101214
  Receipt Date: 20101206
  Transmission Date: 20110411
  Serious: Yes (Hospitalization)
  Sender: FDA-Public Use
  Company Number: BR-ASTRAZENECA-2010SE57986

PATIENT
  Age: 67 Year
  Sex: Male
  Weight: 70 kg

DRUGS (4)
  1. CRESTOR [Suspect]
     Indication: HYPERCHOLESTEROLAEMIA
     Route: 048
     Dates: start: 20070101
  2. SEROQUEL XR [Suspect]
     Indication: INSOMNIA
     Route: 048
  3. SEROQUEL XR [Suspect]
     Indication: NERVOUSNESS
     Route: 048
  4. ASPIRIN [Concomitant]
     Indication: ANTICOAGULANT THERAPY
     Dosage: DAILY
     Route: 048
     Dates: start: 19900101

REACTIONS (5)
  - CHEST PAIN [None]
  - FATIGUE [None]
  - INSOMNIA [None]
  - NERVOUSNESS [None]
  - OFF LABEL USE [None]
